FAERS Safety Report 18818415 (Version 1)
Quarter: 2021Q1

REPORT INFORMATION
  Report Type: Spontaneous
  Country: FR (occurrence: FR)
  Receive Date: 20210201
  Receipt Date: 20210201
  Transmission Date: 20210419
  Serious: Yes (Hospitalization)
  Sender: FDA-Public Use
  Company Number: FR-MYLANLABS-2021M1005260

PATIENT
  Age: 16 Year
  Sex: Female
  Weight: 53 kg

DRUGS (5)
  1. ETOPOSIDE. [Suspect]
     Active Substance: ETOPOSIDE
     Indication: OSTEOSARCOMA
     Dosage: 1776 MILLIGRAM
     Route: 041
     Dates: start: 20190405, end: 20191024
  2. DOXORUBICINE                       /00330901/ [Suspect]
     Active Substance: DOXORUBICIN
     Indication: OSTEOSARCOMA
     Dosage: 37.5 MILLIGRAM/SQ. METER
     Route: 041
     Dates: start: 20200703, end: 20200724
  3. CISPLATIN. [Suspect]
     Active Substance: CISPLATIN
     Indication: OSTEOSARCOMA METASTATIC
     Dosage: 120 MILLIGRAM/SQ. METER
     Route: 041
     Dates: start: 20200703, end: 20200724
  4. IFOSFAMIDE. [Suspect]
     Active Substance: IFOSFAMIDE
     Indication: OSTEOSARCOMA
     Dosage: 88.72 GRAM
     Route: 041
     Dates: start: 20190405, end: 20191024
  5. METHOTREXATE. [Suspect]
     Active Substance: METHOTREXATE
     Indication: OSTEOSARCOMA
     Dosage: 336.2 GRAM
     Route: 041
     Dates: start: 20190314, end: 20191126

REACTIONS (1)
  - Renal tubular disorder [Recovered/Resolved]
